FAERS Safety Report 8004745-6 (Version None)
Quarter: 2011Q4

REPORT INFORMATION
  Report Type: 
  Country: None (occurrence: None)
  Receive Date: 20111220
  Receipt Date: 20111205
  Transmission Date: 20120403
  Serious: Yes (Hospitalization, Congenital Anomaly)
  Sender: FDA-Public Use
  Company Number: 1000026311

PATIENT
  Sex: Male

DRUGS (2)
  1. ESCITALOPRAM OXALATE [Suspect]
     Dosage: 10 MG (10 MG, 1 IN 1 D), TRANSPLACENTAL
     Route: 064
     Dates: start: 20110218, end: 20110818
  2. XANAX [Concomitant]

REACTIONS (8)
  - CONGENITAL ANOMALY [None]
  - MATERNAL DRUGS AFFECTING FOETUS [None]
  - INFECTION [None]
  - CAESAREAN SECTION [None]
  - BONE MARROW DISORDER [None]
  - ANAEMIA [None]
  - NO THERAPEUTIC RESPONSE [None]
  - RESPIRATORY DISORDER [None]
